FAERS Safety Report 13916050 (Version 1)
Quarter: 2017Q3

REPORT INFORMATION
  Report Type: Spontaneous
  Country: US (occurrence: US)
  Receive Date: 20170829
  Receipt Date: 20170829
  Transmission Date: 20171127
  Serious: No
  Sender: FDA-Public Use
  Company Number: US-009507513-1708USA009380

PATIENT
  Sex: Male

DRUGS (1)
  1. ZEPATIER [Suspect]
     Active Substance: ELBASVIR\GRAZOPREVIR
     Indication: HEPATITIS
     Dosage: 100/50 MG
     Route: 048
     Dates: start: 20170529

REACTIONS (1)
  - Hair growth abnormal [Unknown]

NARRATIVE: CASE EVENT DATE: 2017
